FAERS Safety Report 5655235-7 (Version None)
Quarter: 2008Q1

REPORT INFORMATION
  Report Type: 
  Country: None (occurrence: None)
  Receive Date: 20080307
  Receipt Date: 20080305
  Transmission Date: 20080703
  Serious: Yes (Congenital Anomaly)
  Sender: FDA-Public Use
  Company Number: A0697831A

PATIENT
  Sex: Female
  Weight: 3.1 kg

DRUGS (7)
  1. BUPROPION HCL [Suspect]
     Indication: ANXIETY
     Dosage: 150MG PER DAY
     Dates: start: 20070126, end: 20070101
  2. BUSPAR [Concomitant]
     Indication: DRUG USE FOR UNKNOWN INDICATION
  3. ANTIDEPRESSANT (UNSPECIFIED) [Concomitant]
  4. FOLIC ACID [Concomitant]
  5. MULTI-VITAMIN [Concomitant]
  6. SEPTRA [Concomitant]
  7. ZYRTEC [Concomitant]

REACTIONS (3)
  - CHROMOSOMAL DELETION [None]
  - CRI DU CHAT SYNDROME [None]
  - DRUG EXPOSURE DURING PREGNANCY [None]
